FAERS Safety Report 23354154 (Version 3)
Quarter: 2025Q2

REPORT INFORMATION
  Report Type: Report from Study
  Country: JP (occurrence: JP)
  Receive Date: 20240101
  Receipt Date: 20250620
  Transmission Date: 20250717
  Serious: Yes (Life-Threatening, Hospitalization, Other)
  Sender: ASTELLAS
  Company Number: JP-ASTELLAS-2022JP001765

PATIENT
  Age: 80 Year
  Sex: Male
  Weight: 56.5 kg

DRUGS (37)
  1. PADCEV [Suspect]
     Active Substance: ENFORTUMAB VEDOTIN-EJFV
     Indication: Bladder cancer
     Route: 042
     Dates: start: 20220105, end: 20220119
  2. PADCEV [Suspect]
     Active Substance: ENFORTUMAB VEDOTIN-EJFV
     Route: 042
     Dates: start: 20220215, end: 20220301
  3. PADCEV [Suspect]
     Active Substance: ENFORTUMAB VEDOTIN-EJFV
     Route: 042
     Dates: start: 20220510, end: 20220621
  4. PADCEV [Suspect]
     Active Substance: ENFORTUMAB VEDOTIN-EJFV
     Route: 042
     Dates: start: 20220712, end: 20220726
  5. PADCEV [Suspect]
     Active Substance: ENFORTUMAB VEDOTIN-EJFV
     Route: 042
     Dates: start: 20220816, end: 20220823
  6. PADCEV [Suspect]
     Active Substance: ENFORTUMAB VEDOTIN-EJFV
     Route: 042
     Dates: start: 20220927, end: 20221004
  7. PADCEV [Suspect]
     Active Substance: ENFORTUMAB VEDOTIN-EJFV
     Route: 042
     Dates: start: 20221018, end: 20221018
  8. PADCEV [Suspect]
     Active Substance: ENFORTUMAB VEDOTIN-EJFV
     Route: 042
     Dates: start: 20221101, end: 20221115
  9. PADCEV [Suspect]
     Active Substance: ENFORTUMAB VEDOTIN-EJFV
     Route: 042
     Dates: start: 20221213
  10. AZOSEMIDE [Suspect]
     Active Substance: AZOSEMIDE
     Indication: Oedema peripheral
     Route: 048
     Dates: start: 20220120, end: 20220126
  11. AZOSEMIDE [Suspect]
     Active Substance: AZOSEMIDE
     Indication: Oedema peripheral
     Route: 048
     Dates: start: 20220621, end: 20220704
  12. EURAX [Concomitant]
     Active Substance: CROTAMITON
     Indication: Pruritus
     Dosage: ADEQUATE DOSE
     Route: 065
     Dates: start: 20220112, end: 2022
  13. BILASTINE [Concomitant]
     Active Substance: BILASTINE
     Indication: Pruritus
     Route: 048
     Dates: start: 20220117, end: 20220213
  14. METOCLOPRAMIDE [Concomitant]
     Active Substance: METOCLOPRAMIDE
     Indication: Nausea
     Route: 048
     Dates: start: 20220120, end: 20220126
  15. ALESION [Concomitant]
     Active Substance: EPINASTINE HYDROCHLORIDE
     Indication: Rash
     Route: 048
     Dates: start: 20220125, end: 20220207
  16. ALESION [Concomitant]
     Active Substance: EPINASTINE HYDROCHLORIDE
     Indication: Dermatitis exfoliative generalised
  17. CLOBETASOL PROPIONATE [Concomitant]
     Active Substance: CLOBETASOL PROPIONATE
     Indication: Rash
     Dosage: ADEQUATE DOSE
     Route: 065
     Dates: start: 20220125, end: 2022
  18. CLOBETASOL PROPIONATE [Concomitant]
     Active Substance: CLOBETASOL PROPIONATE
     Indication: Dermatitis exfoliative generalised
  19. PETROLATUM [Concomitant]
     Active Substance: PETROLATUM
     Indication: Rash
     Dosage: ADEQUATE DOSE
     Route: 065
     Dates: start: 20220125, end: 2022
  20. PETROLATUM [Concomitant]
     Active Substance: PETROLATUM
     Indication: Dermatitis exfoliative generalised
  21. METHYLCOBALAMIN [Concomitant]
     Active Substance: METHYLCOBALAMIN
     Indication: Peripheral motor neuropathy
     Route: 048
     Dates: start: 20220202, end: 20220404
  22. MIROGABALIN BESYLATE [Concomitant]
     Active Substance: MIROGABALIN BESYLATE
     Indication: Peripheral sensory neuropathy
     Route: 048
     Dates: start: 20220215, end: 20221003
  23. MIROGABALIN BESYLATE [Concomitant]
     Active Substance: MIROGABALIN BESYLATE
     Route: 048
     Dates: start: 20221004, end: 20221114
  24. MIROGABALIN BESYLATE [Concomitant]
     Active Substance: MIROGABALIN BESYLATE
     Route: 048
     Dates: start: 20221115
  25. VONOPRAZAN FUMARATE [Concomitant]
     Active Substance: VONOPRAZAN FUMARATE
     Indication: Gastrooesophageal reflux disease
     Route: 048
     Dates: start: 20220309, end: 20220606
  26. PREDONINE [Concomitant]
     Active Substance: PREDNISOLONE
     Indication: Interstitial lung disease
     Route: 048
     Dates: start: 20220315, end: 20220323
  27. PREDONINE [Concomitant]
     Active Substance: PREDNISOLONE
     Route: 048
     Dates: start: 20220324, end: 20220330
  28. PREDONINE [Concomitant]
     Active Substance: PREDNISOLONE
     Route: 048
     Dates: start: 20220331, end: 20220405
  29. PREDONINE [Concomitant]
     Active Substance: PREDNISOLONE
     Route: 048
     Dates: start: 20220406, end: 20220412
  30. PREDONINE [Concomitant]
     Active Substance: PREDNISOLONE
     Route: 048
     Dates: start: 20220413, end: 20220426
  31. PREDONINE [Concomitant]
     Active Substance: PREDNISOLONE
     Route: 048
     Dates: start: 20220427, end: 20220510
  32. FUROSEMIDE [Concomitant]
     Active Substance: FUROSEMIDE
     Indication: Oedema peripheral
     Route: 048
     Dates: start: 20220607, end: 20220704
  33. AMOXICILLIN [Concomitant]
     Active Substance: AMOXICILLIN
     Indication: Colitis
     Route: 048
     Dates: start: 20220830, end: 20220905
  34. AMOXICILLIN [Concomitant]
     Active Substance: AMOXICILLIN
     Indication: Colitis
     Dosage: 250 MG, THRICE DAILY
     Route: 048
     Dates: start: 20220913, end: 20220919
  35. AUGMENTIN [Concomitant]
     Active Substance: AMOXICILLIN\CLAVULANATE POTASSIUM
     Indication: Colitis
     Dosage: 250RS
     Route: 048
     Dates: start: 20220830, end: 20220905
  36. AUGMENTIN [Concomitant]
     Active Substance: AMOXICILLIN\CLAVULANATE POTASSIUM
     Indication: Colitis
     Dosage: 250RS, THRICE DAILY
     Route: 048
     Dates: start: 20220913, end: 20220919
  37. BIO-THREE [Concomitant]
     Active Substance: HERBALS
     Indication: Colitis
     Route: 048
     Dates: start: 20220830

REACTIONS (16)
  - Anaemia [Recovered/Resolved]
  - Dermatitis exfoliative generalised [Recovered/Resolved]
  - Rash [Recovered/Resolved]
  - Peripheral sensory neuropathy [Not Recovered/Not Resolved]
  - Oedema peripheral [Recovered/Resolved]
  - Dysphonia [Recovered/Resolved]
  - Thirst [Recovered/Resolved]
  - Pruritus [Recovered/Resolved]
  - Alopecia [Recovered/Resolved]
  - Taste disorder [Recovered/Resolved]
  - Nausea [Recovered/Resolved]
  - Peripheral motor neuropathy [Recovered/Resolved]
  - Oedema peripheral [Recovered/Resolved]
  - Renal impairment [Recovered/Resolved]
  - Foot fracture [Recovered/Resolved]
  - Pyrexia [Recovered/Resolved]

NARRATIVE: CASE EVENT DATE: 20220110
